FAERS Safety Report 7455660-8 (Version None)
Quarter: 2011Q2

REPORT INFORMATION
  Report Type: 
  Country: None (occurrence: None)
  Receive Date: 20110503
  Receipt Date: 20110428
  Transmission Date: 20111010
  Serious: Yes (Death)
  Sender: FDA-Public Use
  Company Number: DE-ROCHE-774447

PATIENT
  Sex: Male
  Weight: 75 kg

DRUGS (2)
  1. BEVACIZUMAB [Suspect]
     Dosage: DOSE: 5
     Route: 065
     Dates: start: 20100914, end: 20110120
  2. FOLFOX REGIMEN [Concomitant]
     Dates: start: 20100914, end: 20110120

REACTIONS (2)
  - NO THERAPEUTIC RESPONSE [None]
  - NEOPLASM MALIGNANT [None]
